FAERS Safety Report 20254207 (Version 2)
Quarter: 2022Q1

REPORT INFORMATION
  Report Type: Spontaneous
  Country: IT (occurrence: IT)
  Receive Date: 20211230
  Receipt Date: 20220117
  Transmission Date: 20220423
  Serious: Yes (Other)
  Sender: FDA-Public Use
  Company Number: IT-CELLTRION INC.-2021IT017534

PATIENT

DRUGS (3)
  1. RITUXIMAB [Suspect]
     Active Substance: RITUXIMAB
     Indication: Anti-myelin-associated glycoprotein associated polyneuropathy
     Dosage: 375 MG/M2, QW
     Route: 041
  2. RITUXIMAB [Suspect]
     Active Substance: RITUXIMAB
     Dosage: FOR CONSECUTIVE FOUR WEEKS
     Route: 042
  3. RITUXIMAB [Suspect]
     Active Substance: RITUXIMAB
     Dosage: 375 MG/M2, QW (SOLUTION) (FOR CONSECUTIVE FOUR WEEKS)
     Route: 042

REACTIONS (4)
  - Anti-myelin-associated glycoprotein associated polyneuropathy [Unknown]
  - Serum sickness [Unknown]
  - Product use in unapproved indication [Unknown]
  - Off label use [Unknown]
